FAERS Safety Report 5311728-3 (Version None)
Quarter: 2007Q2

REPORT INFORMATION
  Report Type: 
  Country: None (occurrence: None)
  Receive Date: 20070430
  Receipt Date: 20070419
  Transmission Date: 20071010
  Serious: Yes (Hospitalization, Disabling)
  Sender: FDA-Public Use
  Company Number: US-ROCHE-400598

PATIENT
  Age: 15 Year
  Sex: Male
  Weight: 67.3 kg

DRUGS (2)
  1. ACCUTANE [Suspect]
     Indication: DRUG USE FOR UNKNOWN INDICATION
     Route: 048
     Dates: start: 19980407
  2. ACCUTANE [Suspect]
     Route: 048
     Dates: start: 19980414, end: 19980801

REACTIONS (16)
  - ANAEMIA [None]
  - ARTHRALGIA [None]
  - CLOSTRIDIUM DIFFICILE COLITIS [None]
  - COLITIS [None]
  - COLITIS ULCERATIVE [None]
  - DRY SKIN [None]
  - EPISTAXIS [None]
  - GASTROINTESTINAL DISORDER [None]
  - INFLAMMATORY BOWEL DISEASE [None]
  - INTESTINAL HAEMORRHAGE [None]
  - MULTI-ORGAN DISORDER [None]
  - OCULAR HYPERAEMIA [None]
  - PROCTITIS ULCERATIVE [None]
  - RECTAL HAEMORRHAGE [None]
  - SCAR [None]
  - TENDONITIS [None]
